FAERS Safety Report 4371776-7 (Version None)
Quarter: 2004Q2

REPORT INFORMATION
  Report Type: 
  Country: None (occurrence: None)
  Receive Date: 20040604
  Receipt Date: 20040604
  Transmission Date: 20050107
  Serious: Yes (Hospitalization)
  Sender: FDA-Public Use
  Company Number: None

PATIENT
  Sex: Male

DRUGS (7)
  1. GEMZAR [Suspect]
     Indication: PANCREATIC CARCINOMA
     Dosage: 1830 MG IV Q WEEK
     Route: 042
     Dates: start: 20040419
  2. GEMZAR [Suspect]
     Indication: PANCREATIC CARCINOMA
     Dosage: 1830 MG IV Q WEEK
     Route: 042
     Dates: start: 20040524
  3. ANZEMET [Concomitant]
  4. DECADRON [Concomitant]
  5. PEPCID [Concomitant]
  6. IMODIUM [Concomitant]
  7. ARANESP [Concomitant]

REACTIONS (1)
  - DIABETIC KETOACIDOSIS [None]
